FAERS Safety Report 25048236 (Version 1)
Quarter: 2025Q1

REPORT INFORMATION
  Report Type: Spontaneous
  Country: US (occurrence: US)
  Receive Date: 20250307
  Receipt Date: 20250307
  Transmission Date: 20250408
  Serious: No
  Sender: ROCHE
  Company Number: US-ROCHE-10000225278

PATIENT
  Age: 72 Year
  Sex: Male

DRUGS (6)
  1. ESBRIET [Suspect]
     Active Substance: PIRFENIDONE
     Indication: Idiopathic pulmonary fibrosis
     Route: 048
  2. ESBRIET [Suspect]
     Active Substance: PIRFENIDONE
     Indication: Upper-airway cough syndrome
  3. HYDROCODONE [Concomitant]
     Active Substance: HYDROCODONE
  4. IPRATROPIUM [Concomitant]
     Active Substance: IPRATROPIUM
  5. KETOCONAZOLE [Concomitant]
     Active Substance: KETOCONAZOLE
  6. ZOLPIDEM [Concomitant]
     Active Substance: ZOLPIDEM TARTRATE

REACTIONS (1)
  - Sunburn [Unknown]
